FAERS Safety Report 17495700 (Version 17)
Quarter: 2024Q1

REPORT INFORMATION
  Report Type: Spontaneous
  Country: US (occurrence: US)
  Receive Date: 20200304
  Receipt Date: 20240123
  Transmission Date: 20240410
  Serious: Yes (Other)
  Sender: FDA-Public Use
  Company Number: US-PFIZER INC-2020095853

PATIENT
  Age: 80 Year
  Sex: Female
  Weight: 63 kg

DRUGS (5)
  1. PREMARIN [Suspect]
     Active Substance: ESTROGENS, CONJUGATED
     Indication: Menopause
     Dosage: UNK [0.625]
     Dates: start: 1980
  2. PREMARIN [Suspect]
     Active Substance: ESTROGENS, CONJUGATED
     Dosage: UNK, ^0.625 GM 1 PER 90 DAYS^
  3. PREMARIN [Suspect]
     Active Substance: ESTROGENS, CONJUGATED
     Dosage: UNK, 1X/DAY
     Route: 048
  4. PREMARIN [Suspect]
     Active Substance: ESTROGENS, CONJUGATED
     Dosage: 625 DOSE
  5. PREMARIN [Suspect]
     Active Substance: ESTROGENS, CONJUGATED
     Dosage: 0.625, 1X/DAY
     Route: 048

REACTIONS (18)
  - Knee arthroplasty [Unknown]
  - Menopausal symptoms [Unknown]
  - Insomnia [Unknown]
  - Hyperhidrosis [Unknown]
  - Illness [Unknown]
  - Nervousness [Unknown]
  - Anxiety [Unknown]
  - Nasopharyngitis [Unknown]
  - Gait disturbance [Unknown]
  - Pain in extremity [Unknown]
  - Visual impairment [Unknown]
  - Malaise [Unknown]
  - COVID-19 [Unknown]
  - Feeling hot [Recovered/Resolved]
  - Panic disorder [Unknown]
  - Intentional product misuse [Unknown]
  - Product prescribing error [Unknown]
  - Intentional dose omission [Unknown]

NARRATIVE: CASE EVENT DATE: 20200201
